FAERS Safety Report 25784272 (Version 2)
Quarter: 2025Q3

REPORT INFORMATION
  Report Type: Report from Study
  Country: US (occurrence: US)
  Receive Date: 20250910
  Receipt Date: 20250930
  Transmission Date: 20251020
  Serious: Yes (Other)
  Sender: ABBVIE
  Company Number: US-ABBVIE-6449982

PATIENT
  Age: 67 Year
  Sex: Female
  Weight: 63.04 kg

DRUGS (7)
  1. SKYRIZI [Suspect]
     Active Substance: RISANKIZUMAB-RZAA
     Indication: Crohn^s disease
     Dosage: FORM STRENGTH: 360 MILLIGRAM
     Route: 058
     Dates: start: 20240821
  2. CRESTOR [Concomitant]
     Active Substance: ROSUVASTATIN CALCIUM
     Indication: Blood cholesterol increased
  3. FISH OIL [Concomitant]
     Active Substance: FISH OIL
     Indication: Supplementation therapy
  4. VITAMIN D [Concomitant]
     Active Substance: VITAMIN D NOS
     Indication: Vitamin supplementation
  5. VITAMINS [Concomitant]
     Active Substance: VITAMINS
     Indication: Vitamin supplementation
  6. PROLIA [Concomitant]
     Active Substance: DENOSUMAB
     Indication: Osteoporosis
  7. MESALAMINE [Concomitant]
     Active Substance: MESALAMINE
     Indication: Inflammation

REACTIONS (5)
  - Colitis [Recovering/Resolving]
  - Nasopharyngitis [Recovering/Resolving]
  - Procedural pain [Recovered/Resolved]
  - Abdominal pain [Recovered/Resolved]
  - Vomiting [Recovered/Resolved]

NARRATIVE: CASE EVENT DATE: 20250726
